FAERS Safety Report 9922687 (Version 2)
Quarter: 2014Q1

REPORT INFORMATION
  Report Type: Spontaneous
  Country: US (occurrence: US)
  Receive Date: 20140225
  Receipt Date: 20140225
  Transmission Date: 20141002
  Serious: No
  Sender: FDA-Public Use
  Company Number: US-MYLANLABS-2013S1001193

PATIENT
  Age: 78 Year
  Sex: Female

DRUGS (3)
  1. METOPROLOL TARTRATE TABLETS, USP [Suspect]
     Indication: ARRHYTHMIA
     Route: 048
     Dates: start: 201211
  2. METOPROLOL TARTRATE TABLETS, USP [Suspect]
     Indication: OFF LABEL USE
     Route: 048
     Dates: start: 201211
  3. FISH OIL [Concomitant]

REACTIONS (2)
  - Somnolence [Not Recovered/Not Resolved]
  - Abdominal pain upper [Not Recovered/Not Resolved]
